FAERS Safety Report 7590089-3 (Version None)
Quarter: 2011Q3

REPORT INFORMATION
  Report Type: 
  Country: None (occurrence: None)
  Receive Date: 20110705
  Receipt Date: 20110628
  Transmission Date: 20111222
  Serious: Yes (Other)
  Sender: FDA-Public Use
  Company Number: B0725472A

PATIENT
  Age: 44 Year
  Sex: Female

DRUGS (1)
  1. HEPTODIN [Suspect]
     Indication: HEPATIC CIRRHOSIS
     Dosage: .1G PER DAY
     Route: 048
     Dates: start: 20110510, end: 20110603

REACTIONS (4)
  - MYALGIA [None]
  - WHITE BLOOD CELL COUNT DECREASED [None]
  - BONE PAIN [None]
  - TRANSAMINASES INCREASED [None]
